FAERS Safety Report 9071808 (Version 2)
Quarter: 2013Q1

REPORT INFORMATION
  Report Type: Spontaneous
  Country: LY (occurrence: LY)
  Receive Date: 20130129
  Receipt Date: 20130312
  Transmission Date: 20140127
  Serious: Yes (Death)
  Sender: FDA-Public Use
  Company Number: LY-ABBOTT-13P-097-1041286-00

PATIENT
  Sex: Male
  Weight: 1.17 kg

DRUGS (8)
  1. SURVANTA [Suspect]
     Indication: PREMATURE BABY
     Dates: start: 20130114, end: 20130115
  2. SURVANTA [Suspect]
     Dosage: 4CC/KG THROUGH ETT EVERY 12H
  3. PENICILLIN G [Concomitant]
     Indication: PRODUCT USED FOR UNKNOWN INDICATION
     Dosage: 13.000Q12H
     Dates: start: 20130114, end: 20130116
  4. GENTAMICIN [Concomitant]
     Indication: PRODUCT USED FOR UNKNOWN INDICATION
     Dates: start: 20130114, end: 20130116
  5. IVF D10% [Concomitant]
     Indication: PRODUCT USED FOR UNKNOWN INDICATION
     Dosage: 90CC/KG/DAY
     Dates: start: 20130114, end: 20130116
  6. MORPHINE [Concomitant]
     Indication: PRODUCT USED FOR UNKNOWN INDICATION
     Dates: start: 20130115, end: 20130116
  7. CA GLUCONATE [Concomitant]
     Indication: PRODUCT USED FOR UNKNOWN INDICATION
     Dates: start: 20130115, end: 20130116
  8. HUMAN ALBUMIN [Concomitant]
     Indication: PRODUCT USED FOR UNKNOWN INDICATION
     Dates: start: 20130116, end: 20130116

REACTIONS (5)
  - Pulmonary haemorrhage [Fatal]
  - Neonatal respiratory distress syndrome [Fatal]
  - Unevaluable event [Fatal]
  - Low birth weight baby [Fatal]
  - Hypercapnia [Fatal]
